FAERS Safety Report 23238250 (Version 3)
Quarter: 2024Q2

REPORT INFORMATION
  Report Type: Report from Study
  Country: US (occurrence: US)
  Receive Date: 20231129
  Receipt Date: 20240515
  Transmission Date: 20240716
  Serious: Yes (Hospitalization)
  Sender: FDA-Public Use
  Company Number: US-TAKEDA-2023TUS112560

PATIENT
  Sex: Male

DRUGS (1)
  1. MARIBAVIR [Suspect]
     Active Substance: MARIBAVIR
     Indication: Cytomegalovirus infection
     Dosage: 400 MILLIGRAM, BID
     Route: 048
     Dates: start: 20231122, end: 20240415

REACTIONS (6)
  - Hospitalisation [Unknown]
  - Weight increased [Unknown]
  - Asthenia [Not Recovered/Not Resolved]
  - Cytomegalovirus infection [Recovering/Resolving]
  - Fatigue [Unknown]
  - Wrong technique in product usage process [Unknown]
